FAERS Safety Report 6168727-1 (Version None)
Quarter: 2009Q2

REPORT INFORMATION
  Report Type: 
  Country: None (occurrence: None)
  Receive Date: 20090423
  Receipt Date: 20090409
  Transmission Date: 20091009
  Serious: Yes (Other)
  Sender: FDA-Public Use
  Company Number: GB-DEXPHARM-20090462

PATIENT
  Age: 49 Year
  Sex: Female

DRUGS (4)
  1. OMEPRAZOLE [Suspect]
     Indication: DYSPEPSIA
     Dosage: 20 MG MILLGRAM(S), ORAL
     Route: 048
     Dates: start: 20081020, end: 20090205
  2. BECLOMETHASONE DIPROPIONATE [Concomitant]
  3. TEGRETOL [Concomitant]
  4. INDERAL LA [Concomitant]

REACTIONS (12)
  - ABDOMINAL PAIN [None]
  - ANXIETY [None]
  - CONTUSION [None]
  - DEPRESSED MOOD [None]
  - EAR DISCOMFORT [None]
  - FACIAL PAIN [None]
  - GINGIVAL BLEEDING [None]
  - METRORRHAGIA [None]
  - NASAL CONGESTION [None]
  - NIGHTMARE [None]
  - PANIC ATTACK [None]
  - PYREXIA [None]
